FAERS Safety Report 24244740 (Version 3)
Quarter: 2025Q2

REPORT INFORMATION
  Report Type: Report from Study
  Country: BR (occurrence: BR)
  Receive Date: 20240823
  Receipt Date: 20250530
  Transmission Date: 20250716
  Serious: Yes (Life-Threatening, Hospitalization, Other)
  Sender: TAKEDA
  Company Number: BR-TAKEDA-2023TUS009594

PATIENT
  Sex: Female

DRUGS (5)
  1. VEDOLIZUMAB [Suspect]
     Active Substance: VEDOLIZUMAB
     Indication: Crohn^s disease
  2. VEDOLIZUMAB [Suspect]
     Active Substance: VEDOLIZUMAB
     Indication: Colitis ulcerative
  3. ASPIRIN [Concomitant]
     Active Substance: ASPIRIN
     Indication: Thrombosis
  4. ACETAMINOPHEN [Concomitant]
     Active Substance: ACETAMINOPHEN
     Indication: Fibromyalgia
  5. CAFFEINE\DIPYRONE\ORPHENADRINE [Concomitant]
     Active Substance: CAFFEINE\DIPYRONE\ORPHENADRINE
     Indication: Fibromyalgia

REACTIONS (10)
  - Haemorrhage [Recovered/Resolved]
  - Upper limb fracture [Recovered/Resolved]
  - Thrombosis [Recovered/Resolved]
  - Accident [Recovering/Resolving]
  - Product availability issue [Unknown]
  - Diarrhoea [Unknown]
  - Abdominal pain [Unknown]
  - Abdominal distension [Unknown]
  - Chills [Unknown]
  - Inappropriate schedule of product administration [Unknown]
